FAERS Safety Report 10021197 (Version 1)
Quarter: 2014Q1

REPORT INFORMATION
  Report Type: Spontaneous
  Country: US (occurrence: US)
  Receive Date: 20140319
  Receipt Date: 20140319
  Transmission Date: 20141002
  Serious: No
  Sender: FDA-Public Use
  Company Number: US-PFIZER INC-2014079484

PATIENT
  Age: 54 Year
  Sex: Female

DRUGS (2)
  1. DEPO-MEDROL [Suspect]
     Dosage: UNK
  2. DECADRON [Suspect]
     Dosage: UNK

REACTIONS (1)
  - Drug hypersensitivity [Unknown]
